FAERS Safety Report 9963308 (Version 1)
Quarter: 2014Q1

REPORT INFORMATION
  Report Type: Report from Study
  Country: US (occurrence: US)
  Receive Date: 20140305
  Receipt Date: 20140305
  Transmission Date: 20141002
  Serious: No
  Sender: FDA-Public Use
  Company Number: US-ABBVIE-13P-163-1119473-00

PATIENT
  Age: 36 Year
  Sex: Female

DRUGS (4)
  1. HUMIRA [Suspect]
     Indication: CROHN^S DISEASE
     Dates: start: 20130613
  2. HUMIRA [Suspect]
     Dates: start: 20130627
  3. HUMIRA [Suspect]
     Dates: start: 20130711
  4. DEPO-PROVERA [Concomitant]
     Indication: CONTRACEPTION

REACTIONS (6)
  - Defaecation urgency [Unknown]
  - Faeces soft [Not Recovered/Not Resolved]
  - Injection site pain [Unknown]
  - Headache [Unknown]
  - Nausea [Not Recovered/Not Resolved]
  - Diarrhoea [Unknown]
